FAERS Safety Report 8023362 (Version 5)
Quarter: 2014Q3

REPORT INFORMATION
  Report Type: Spontaneous
  Country: US (occurrence: US)
  Receive Date: 20110706
  Receipt Date: 20140707
  Transmission Date: 20150326
  Serious: Yes (Hospitalization)
  Sender: FDA-Public Use
  Company Number: US-GLAXOSMITHKLINE-A0903719A

PATIENT
  Sex: Female
  Weight: 89.5 kg

DRUGS (9)
  1. ACTOS [Concomitant]
     Active Substance: PIOGLITAZONE HYDROCHLORIDE
  2. SIMVASTATIN. [Concomitant]
     Active Substance: SIMVASTATIN
  3. AVANDIA [Suspect]
     Active Substance: ROSIGLITAZONE MALEATE
     Indication: TYPE 2 DIABETES MELLITUS
     Dosage: 4MG PER DAY
     Route: 048
     Dates: start: 200301, end: 2005
  4. JANUVIA [Concomitant]
     Active Substance: SITAGLIPTIN PHOSPHATE
  5. PREMARIN [Concomitant]
     Active Substance: ESTROGENS, CONJUGATED
  6. AVANDAMET [Suspect]
     Active Substance: METFORMIN HYDROCHLORIDE\ROSIGLITAZONE MALEATE
     Indication: DIABETES MELLITUS
     Route: 048
     Dates: start: 2005, end: 20071017
  7. GLIPIZIDE. [Concomitant]
     Active Substance: GLIPIZIDE
  8. ENALAPRIL [Concomitant]
     Active Substance: ENALAPRIL
  9. CARVEDILOL. [Concomitant]
     Active Substance: CARVEDILOL

REACTIONS (14)
  - Hypertension [Unknown]
  - Asthenia [Unknown]
  - Back pain [Unknown]
  - Depression [Unknown]
  - General physical health deterioration [Unknown]
  - Suicidal ideation [Not Recovered/Not Resolved]
  - Blood cholesterol increased [Unknown]
  - Exercise tolerance decreased [Unknown]
  - Abdominal distension [Unknown]
  - Hyperphagia [Unknown]
  - Fatigue [Unknown]
  - Cardiomegaly [Unknown]
  - Cardiac disorder [Unknown]
  - Atrioventricular block first degree [Unknown]
